FAERS Safety Report 5883204-0 (Version None)
Quarter: 2008Q3

REPORT INFORMATION
  Report Type: 
  Country: None (occurrence: None)
  Receive Date: 20080915
  Receipt Date: 20080902
  Transmission Date: 20090109
  Serious: Yes (Hospitalization)
  Sender: FDA-Public Use
  Company Number: GB-RANBAXY-2008RR-17784

PATIENT

DRUGS (2)
  1. FLUCONAZOLE [Suspect]
     Indication: PNEUMONIA CRYPTOCOCCAL
     Dosage: UNK
  2. AMITRIPTYLINE HCL [Concomitant]
     Indication: DEPRESSION

REACTIONS (2)
  - SYNCOPE [None]
  - TORSADE DE POINTES [None]
